FAERS Safety Report 8377076-2 (Version None)
Quarter: 2012Q2

REPORT INFORMATION
  Report Type: 
  Country: None (occurrence: None)
  Receive Date: 20120522
  Receipt Date: 20120510
  Transmission Date: 20120825
  Serious: Yes (Other)
  Sender: FDA-Public Use
  Company Number: US-ELI_LILLY_AND_COMPANY-US201008001502

PATIENT
  Sex: Female

DRUGS (11)
  1. FORTEO [Suspect]
     Indication: OSTEOPOROSIS
     Dosage: 20 UG, DAILY (1/D)
     Route: 058
  2. FORTEO [Suspect]
     Dosage: 20 UG, QD
     Route: 058
  3. FORTEO [Suspect]
     Dosage: 20 UG, QD
     Route: 058
  4. FORTEO [Suspect]
     Dosage: 20 UG, QD
     Route: 058
  5. FORTEO [Suspect]
     Dosage: 20 UG, DAILY (1/D)
     Route: 058
  6. FORTEO [Suspect]
     Dosage: 20 UG, DAILY (1/D)
     Route: 058
  7. FORTEO [Suspect]
     Dosage: 20 UG, QD
     Route: 058
  8. FORTEO [Suspect]
     Dosage: 20 UG, DAILY (1/D)
     Route: 058
  9. FORTEO [Suspect]
     Dosage: 20 UG, QD
     Route: 058
  10. FORTEO [Suspect]
     Dosage: 20 UG, QD
     Route: 058
  11. FOSAMAX [Concomitant]

REACTIONS (22)
  - HIP FRACTURE [None]
  - ERYTHEMA [None]
  - INJECTION SITE ERYTHEMA [None]
  - INJECTION SITE HAEMORRHAGE [None]
  - INJECTION SITE URTICARIA [None]
  - INJECTION SITE PRURITUS [None]
  - HEADACHE [None]
  - BLOOD PRESSURE INCREASED [None]
  - BLOOD PRESSURE DECREASED [None]
  - HYPERSENSITIVITY [None]
  - RASH MACULAR [None]
  - BLOOD CALCIUM INCREASED [None]
  - BIOPSY BLOOD VESSEL [None]
  - PAIN IN JAW [None]
  - GLOSSODYNIA [None]
  - PAIN [None]
  - INJECTION SITE DISCOLOURATION [None]
  - EAR PAIN [None]
  - RED BLOOD CELL SEDIMENTATION RATE INCREASED [None]
  - SKIN REACTION [None]
  - ARTHRALGIA [None]
  - INJECTION SITE HAEMATOMA [None]
